FAERS Safety Report 17415466 (Version 2)
Quarter: 2020Q2

REPORT INFORMATION
  Report Type: Spontaneous
  Country: US (occurrence: US)
  Receive Date: 20200213
  Receipt Date: 20200410
  Transmission Date: 20200713
  Serious: No
  Sender: FDA-Public Use
  Company Number: US-SA-2020SA035043

PATIENT
  Age: 61 Year
  Sex: Female

DRUGS (2)
  1. HUMALOG [Concomitant]
     Active Substance: INSULIN LISPRO
     Dosage: BEFORE MEALS 3 UNITS BEFORE BREAKFAST,4 UNITS BEFORE LUNCH AND 3 UNITS BEFORE DINNER.
     Route: 065
  2. LANTUS SOLOSTAR [Suspect]
     Active Substance: INSULIN GLARGINE
     Indication: TYPE 2 DIABETES MELLITUS
     Dosage: 4 IU, QD
     Route: 065

REACTIONS (3)
  - Blood glucose increased [Recovered/Resolved]
  - Therapeutic response decreased [Recovered/Resolved]
  - Device issue [Recovered/Resolved]
